FAERS Safety Report 16517655 (Version 1)
Quarter: 2019Q3

REPORT INFORMATION
  Report Type: Spontaneous
  Country: US (occurrence: US)
  Receive Date: 20190702
  Receipt Date: 20190702
  Transmission Date: 20191004
  Serious: Yes (Death, Hospitalization)
  Sender: FDA-Public Use
  Company Number: None

PATIENT
  Age: 69 Year
  Sex: Female
  Weight: 82.6 kg

DRUGS (1)
  1. TALTZ [Suspect]
     Active Substance: IXEKIZUMAB
     Indication: PSORIASIS
     Dosage: ?          OTHER FREQUENCY:ONCE;?
     Route: 058
     Dates: start: 20190621

REACTIONS (8)
  - Fatigue [None]
  - Diarrhoea [None]
  - Pulseless electrical activity [None]
  - Blood creatinine [None]
  - Dyspnoea [None]
  - Muscular weakness [None]
  - Respiratory failure [None]
  - Urine output decreased [None]

NARRATIVE: CASE EVENT DATE: 20190622
